FAERS Safety Report 15759160 (Version 2)
Quarter: 2019Q1

REPORT INFORMATION
  Report Type: Spontaneous
  Country: US (occurrence: US)
  Receive Date: 20181226
  Receipt Date: 20190116
  Transmission Date: 20190417
  Serious: No
  Sender: FDA-Public Use
  Company Number: US-ASTRAZENECA-2018SF68176

PATIENT
  Age: 30024 Day
  Sex: Female

DRUGS (4)
  1. TUDORZA PRESSAIR [Suspect]
     Active Substance: ACLIDINIUM BROMIDE
     Route: 055
     Dates: start: 2014
  2. ELIQUIS [Concomitant]
     Active Substance: APIXABAN
     Indication: ATRIAL FIBRILLATION
     Route: 048
  3. METOPROLOL SUCCINATE. [Suspect]
     Active Substance: METOPROLOL SUCCINATE
     Indication: CARDIAC DISORDER
     Dosage: 25.0UG UNKNOWN
     Route: 048
     Dates: start: 20170403
  4. VAGIFEM [Concomitant]
     Active Substance: ESTRADIOL
     Indication: HORMONE LEVEL ABNORMAL
     Route: 067

REACTIONS (3)
  - Atrial fibrillation [Not Recovered/Not Resolved]
  - Tachycardia [Not Recovered/Not Resolved]
  - Device failure [Unknown]

NARRATIVE: CASE EVENT DATE: 20160208
